FAERS Safety Report 5978769-4 (Version None)
Quarter: 2008Q4

REPORT INFORMATION
  Report Type: 
  Country: None (occurrence: None)
  Receive Date: 20081204
  Receipt Date: 20081124
  Transmission Date: 20090506
  Serious: Yes (Hospitalization)
  Sender: FDA-Public Use
  Company Number: US-MERCK-0811USA04093

PATIENT
  Sex: Female

DRUGS (1)
  1. DECADRON [Suspect]
     Indication: CARDIOVASCULAR EVENT PROPHYLAXIS
     Route: 064

REACTIONS (2)
  - DRUG INEFFECTIVE [None]
  - VENTRICULAR TACHYCARDIA [None]
